FAERS Safety Report 22921144 (Version 2)
Quarter: 2023Q4

REPORT INFORMATION
  Report Type: Spontaneous
  Country: FR (occurrence: FR)
  Receive Date: 20230908
  Receipt Date: 20231028
  Transmission Date: 20240109
  Serious: Yes (Hospitalization)
  Sender: FDA-Public Use
  Company Number: None

PATIENT
  Age: 61 Year
  Sex: Female
  Weight: 65 kg

DRUGS (7)
  1. PANTOPRAZOLE [Suspect]
     Active Substance: PANTOPRAZOLE
     Indication: Gastric ulcer
     Dosage: 40 MILLIGRAM DAILY; 40MG IN THE EVENING
     Route: 065
     Dates: start: 2023
  2. QUETIAPINE FUMARATE [Suspect]
     Active Substance: QUETIAPINE FUMARATE
     Indication: Mental disorder
     Dosage: 100 MG PER DAY LONG TERM,  QUETIAPINE VIATRIS LP 50 MG, PROLONGED-RELEASE TABLET
  3. PREDNISONE [Suspect]
     Active Substance: PREDNISONE
     Indication: Product used for unknown indication
     Dosage: 1 DOSAGE FORMS DAILY; 1 TAB IN THE MORNING, CORTANCYL 20 MG, SCORED TABLET
     Dates: start: 20230728
  4. SKENAN [Suspect]
     Active Substance: MORPHINE SULFATE
     Indication: Pain
     Dosage: 2 DOSAGE FORMS DAILY; 1 GEL MORNING AND EVENING, SKENAN L.P. 10 MG, PROLONGED-RELEASE MICROGRANULES
     Dates: start: 2023
  5. CYAMEMAZINE [Suspect]
     Active Substance: CYAMEMAZINE
     Indication: Mental disorder
     Dosage: 100 MILLIGRAM DAILY; 100 MG AT BEDTIME, LONG-TERM TREATMENT, CYAMEMAZINE VIATRIS 100 MG, SCORED FILM
  6. MORPHINE SULFATE [Suspect]
     Active Substance: MORPHINE SULFATE
     Indication: Pain
     Dosage: 3 DOSAGE FORMS DAILY; 1 GEL MORNING, NOON AND EVENING IF PAIN, ACTISKENAN 5 MG, CAPSULE
     Dates: start: 2023
  7. CLOMIPRAMINE [Suspect]
     Active Substance: CLOMIPRAMINE
     Indication: Mental disorder
     Dosage: 150 MILLIGRAM DAILY; 150 MG IN THE EVENING, LONG-TERM TREATMENT, CLOMIPRAMINE VIATRIS 75 MG, SCORED

REACTIONS (1)
  - Oedema peripheral [Not Recovered/Not Resolved]

NARRATIVE: CASE EVENT DATE: 20230701
